FAERS Safety Report 10178134 (Version 1)
Quarter: 2014Q2

REPORT INFORMATION
  Report Type: Spontaneous
  Country: DE (occurrence: DE)
  Receive Date: 20140519
  Receipt Date: 20140519
  Transmission Date: 20141212
  Serious: Yes (Life-Threatening, Hospitalization)
  Sender: FDA-Public Use
  Company Number: DE-ROCHE-1399781

PATIENT
  Age: 71 Year
  Sex: Male

DRUGS (9)
  1. CELLCEPT [Suspect]
     Indication: HEART TRANSPLANT REJECTION
     Dosage: 500 MG - 0- 1000 MG (TOTAL 1500 MG PER DAY)
     Route: 048
     Dates: end: 20140223
  2. SANDIMMUN OPTORAL [Suspect]
     Indication: HEART TRANSPLANT REJECTION
     Route: 048
     Dates: end: 20140223
  3. PREDNISOLON [Concomitant]
     Route: 065
  4. RAMIPRIL [Concomitant]
     Route: 048
  5. CANDESARTAN [Concomitant]
     Route: 065
  6. VITAMIN D3 [Concomitant]
     Route: 065
  7. LEVOTHYROXIN [Concomitant]
     Route: 065
  8. INSULIN [Concomitant]
     Route: 042
  9. PROGRAF [Concomitant]
     Route: 065
     Dates: start: 20140223

REACTIONS (5)
  - Systemic inflammatory response syndrome [Unknown]
  - Dehydration [Unknown]
  - Fall [Unknown]
  - Haematoma [Unknown]
  - Renal failure acute [Unknown]
